FAERS Safety Report 18387701 (Version 1)
Quarter: 2020Q4

REPORT INFORMATION
  Report Type: Spontaneous
  Country: US (occurrence: US)
  Receive Date: 20201015
  Receipt Date: 20201015
  Transmission Date: 20210114
  Serious: No
  Sender: FDA-Public Use
  Company Number: US-PFIZER INC-2020397762

PATIENT
  Age: 72 Year
  Sex: Female

DRUGS (1)
  1. GABAPENTIN. [Suspect]
     Active Substance: GABAPENTIN
     Dosage: UNK
     Dates: start: 201808

REACTIONS (6)
  - Muscular weakness [Unknown]
  - Pain [Unknown]
  - Feeling abnormal [Unknown]
  - Drug screen positive [Recovered/Resolved]
  - Illness [Unknown]
  - Vomiting [Unknown]
